FAERS Safety Report 4908128-4 (Version None)
Quarter: 2006Q1

REPORT INFORMATION
  Report Type: 
  Country: None (occurrence: None)
  Receive Date: 20060113
  Receipt Date: 20050929
  Transmission Date: 20060701
  Serious: No
  Sender: FDA-Public Use
  Company Number: 2005SP003299

PATIENT
  Age: 61 Year
  Sex: Male
  Weight: 92.9874 kg

DRUGS (10)
  1. LUNESTA [Suspect]
     Indication: DERMATITIS
     Dosage: 3 MG; 6 MG: HS; ORAL
     Route: 048
     Dates: start: 20050901, end: 20050901
  2. LUNESTA [Suspect]
     Indication: DERMATITIS
     Dosage: 3 MG; 6 MG: HS; ORAL
     Route: 048
     Dates: start: 20050901
  3. AZATHIOPRINE [Concomitant]
  4. MULTIVITAMIN [Concomitant]
  5. CALCIUM GLUCONATE [Concomitant]
  6. THEOPHYLLINE [Concomitant]
  7. ASPIRIN [Concomitant]
  8. FOLIC ACID [Concomitant]
  9. WATER PILLS [Concomitant]
  10. AMBIEN [Concomitant]

REACTIONS (2)
  - DYSGEUSIA [None]
  - INSOMNIA [None]
